FAERS Safety Report 4337581-2 (Version None)
Quarter: 2004Q1

REPORT INFORMATION
  Report Type: 
  Country: None (occurrence: None)
  Receive Date: 20040329
  Receipt Date: 20031223
  Transmission Date: 20041129
  Serious: No
  Sender: FDA-Public Use
  Company Number: USA031255369

PATIENT
  Age: 10 Year
  Sex: Female
  Weight: 29 kg

DRUGS (2)
  1. STRATTERA [Suspect]
     Indication: ATTENTION DEFICIT/HYPERACTIVITY DISORDER
     Dosage: 40 MG/DAY
     Dates: start: 20030201
  2. CLONIDIPINE [Concomitant]

REACTIONS (3)
  - BLEPHAROSPASM [None]
  - DECREASED APPETITE [None]
  - STOMACH DISCOMFORT [None]
